FAERS Safety Report 9995064 (Version 1)
Quarter: 2014Q1

REPORT INFORMATION
  Report Type: Spontaneous
  Country: US (occurrence: None)
  Receive Date: 20140218
  Receipt Date: 20140218
  Transmission Date: 20141002
  Serious: Yes (Other)
  Sender: FDA-Public Use
  Company Number: 1000050820

PATIENT
  Age: 51 Year
  Sex: Female

DRUGS (2)
  1. VIIBRYD [Suspect]
     Indication: DEPRESSION
     Dosage: 1 IN 1 D
     Route: 048
     Dates: start: 201310, end: 201310
  2. ADDERALL (OBETROL) (OBETROL) [Concomitant]

REACTIONS (7)
  - Fatigue [None]
  - Nausea [None]
  - Restless legs syndrome [None]
  - Acne [None]
  - Muscle twitching [None]
  - Insomnia [None]
  - Memory impairment [None]
